FAERS Safety Report 22395557 (Version 1)
Quarter: 2023Q2

REPORT INFORMATION
  Report Type: Spontaneous
  Country: US (occurrence: US)
  Receive Date: 20230601
  Receipt Date: 20230601
  Transmission Date: 20230721
  Serious: Yes (Other)
  Sender: FDA-Public Use
  Company Number: US-BAYER-2023A072291

PATIENT

DRUGS (2)
  1. STIVARGA [Suspect]
     Active Substance: REGORAFENIB
     Indication: Small intestine adenocarcinoma
     Dosage: UNK
     Dates: start: 202111
  2. BOLT 36 [Concomitant]

REACTIONS (2)
  - Small intestine adenocarcinoma [None]
  - Small intestinal obstruction [None]
